FAERS Safety Report 10569702 (Version 1)
Quarter: 2014Q4

REPORT INFORMATION
  Report Type: Report from Study
  Country: GB (occurrence: GB)
  Receive Date: 20141107
  Receipt Date: 20141107
  Transmission Date: 20150529
  Serious: Yes (Disabling)
  Sender: FDA-Public Use
  Company Number: GB-ACCORD-026804

PATIENT
  Age: 68 Year
  Sex: Male

DRUGS (2)
  1. SIMVASTATIN. [Suspect]
     Active Substance: SIMVASTATIN
     Indication: BLOOD CHOLESTEROL INCREASED
     Dosage: 20 UNITS UNSPECIFIED
     Route: 048
     Dates: start: 2014, end: 2014
  2. LIPITOR [Suspect]
     Active Substance: ATORVASTATIN CALCIUM
     Indication: BLOOD CHOLESTEROL INCREASED
     Dosage: UNK

REACTIONS (16)
  - Drug intolerance [Recovered/Resolved]
  - Tenderness [Recovered/Resolved]
  - Occupational problem environmental [Recovered/Resolved]
  - Asthenia [Recovered/Resolved]
  - Impaired work ability [Recovered/Resolved]
  - Social avoidant behaviour [Recovered/Resolved]
  - Psychiatric symptom [Recovered/Resolved]
  - Frustration [Recovered/Resolved]
  - Adverse event [Recovered/Resolved]
  - Fatigue [Recovered/Resolved]
  - Myalgia [Recovered/Resolved]
  - Balance disorder [Recovered/Resolved]
  - Avoidant personality disorder [Recovered/Resolved]
  - Quality of life decreased [Recovered/Resolved]
  - Abnormal dreams [Recovered/Resolved]
  - Social problem [Recovered/Resolved]
